FAERS Safety Report 14655182 (Version 1)
Quarter: 2018Q1

REPORT INFORMATION
  Report Type: Spontaneous
  Country: PL (occurrence: PL)
  Receive Date: 20180319
  Receipt Date: 20180319
  Transmission Date: 20180509
  Serious: Yes (Hospitalization)
  Sender: FDA-Public Use
  Company Number: PL-MYLANLABS-2018M1016248

PATIENT
  Age: 33 Year
  Sex: Male

DRUGS (3)
  1. VANCOMYCIN [Suspect]
     Active Substance: VANCOMYCIN
     Indication: POSTOPERATIVE WOUND INFECTION
     Dosage: 1 G, BID
     Route: 042
     Dates: start: 20170113, end: 20170123
  2. VANCOMYCIN [Suspect]
     Active Substance: VANCOMYCIN
     Indication: STAPHYLOCOCCAL INFECTION
     Dosage: LOCALE APPLICATION
     Route: 061
  3. NEOMYCIN. [Suspect]
     Active Substance: NEOMYCIN
     Indication: POSTOPERATIVE WOUND INFECTION
     Dosage: UNK
     Route: 061

REACTIONS (2)
  - Drug ineffective [Unknown]
  - Ulcer [Recovered/Resolved]
